FAERS Safety Report 17971190 (Version 2)
Quarter: 2020Q3

REPORT INFORMATION
  Report Type: Spontaneous
  Country: US (occurrence: US)
  Receive Date: 20200701
  Receipt Date: 20200811
  Transmission Date: 20201103
  Serious: No
  Sender: FDA-Public Use
  Company Number: US-ASTRAZENECA-2020SE83323

PATIENT
  Sex: Female

DRUGS (1)
  1. BYDUREON BCISE [Suspect]
     Active Substance: EXENATIDE
     Dosage: 2.0MG UNKNOWN
     Route: 065

REACTIONS (6)
  - Contusion [Unknown]
  - Incorrect dose administered [Unknown]
  - Nodule [Unknown]
  - Device leakage [Unknown]
  - Device issue [Unknown]
  - Device delivery system issue [Unknown]
